FAERS Safety Report 25008636 (Version 3)
Quarter: 2025Q1

REPORT INFORMATION
  Report Type: Spontaneous
  Country: IT (occurrence: IT)
  Receive Date: 20250225
  Receipt Date: 20250307
  Transmission Date: 20250408
  Serious: Yes (Other)
  Sender: ESPERION THERAPEUTICS
  Company Number: IT-DAIICHI SANKYO EUROPE GMBH-DS-2025-126244-IT

PATIENT

DRUGS (1)
  1. BEMPEDOIC ACID\EZETIMIBE [Suspect]
     Active Substance: BEMPEDOIC ACID\EZETIMIBE
     Indication: Product used for unknown indication
     Route: 065

REACTIONS (4)
  - Laryngeal oedema [Unknown]
  - Dermatitis bullous [Unknown]
  - Flushing [Unknown]
  - Pruritus [Unknown]
